FAERS Safety Report 10044371 (Version 1)
Quarter: 2014Q1

REPORT INFORMATION
  Report Type: Spontaneous
  Country: BR (occurrence: BR)
  Receive Date: 20140328
  Receipt Date: 20140328
  Transmission Date: 20141002
  Serious: Yes (Other)
  Sender: FDA-Public Use
  Company Number: BR-JNJFOC-20140310657

PATIENT
  Age: 97 Year
  Sex: Male
  Weight: 70 kg

DRUGS (4)
  1. TYLEX [Suspect]
     Indication: CANCER PAIN
     Route: 065
     Dates: start: 20140228
  2. NAPROXEN [Concomitant]
     Indication: PRODUCT USED FOR UNKNOWN INDICATION
     Route: 065
     Dates: start: 20140228
  3. BROMOPRIDE [Concomitant]
     Indication: PRODUCT USED FOR UNKNOWN INDICATION
     Route: 065
     Dates: start: 20140228
  4. DEXAMETHASONE [Concomitant]
     Indication: PRODUCT USED FOR UNKNOWN INDICATION
     Route: 065
     Dates: start: 20140228

REACTIONS (4)
  - Blood pressure decreased [Not Recovered/Not Resolved]
  - Urinary retention [Not Recovered/Not Resolved]
  - Erythema [Not Recovered/Not Resolved]
  - Somnolence [Not Recovered/Not Resolved]
